FAERS Safety Report 24838994 (Version 1)
Quarter: 2025Q1

REPORT INFORMATION
  Report Type: Spontaneous
  Country: US (occurrence: US)
  Receive Date: 20250114
  Receipt Date: 20250114
  Transmission Date: 20250409
  Serious: No
  Sender: EMD SERONO INC
  Company Number: US-Merck Healthcare KGaA-2025000872

PATIENT
  Sex: Female

DRUGS (2)
  1. REBIF [Suspect]
     Active Substance: INTERFERON BETA-1A
     Indication: Multiple sclerosis
     Dosage: 44 UG/0.5 ML
     Dates: start: 201702
  2. ACYCLOVIR [Suspect]
     Active Substance: ACYCLOVIR
     Indication: Herpes zoster immunisation

REACTIONS (2)
  - Allergy to vaccine [Unknown]
  - Contrast media allergy [Unknown]
